FAERS Safety Report 17240477 (Version 5)
Quarter: 2020Q1

REPORT INFORMATION
  Report Type: Spontaneous
  Country: US (occurrence: US)
  Receive Date: 20200107
  Receipt Date: 20200316
  Transmission Date: 20200409
  Serious: Yes (Other)
  Sender: FDA-Public Use
  Company Number: US-AKCEA THERAPEUTICS-2020IS001005

PATIENT

DRUGS (1)
  1. TEGSEDI [Suspect]
     Active Substance: INOTERSEN SODIUM
     Indication: HEREDITARY NEUROPATHIC AMYLOIDOSIS
     Dosage: 284 MG, QW
     Route: 058
     Dates: start: 20191211, end: 20200130

REACTIONS (10)
  - Blood creatine increased [Unknown]
  - Proteinuria [Unknown]
  - Glomerulonephritis [Unknown]
  - Renal disorder [Unknown]
  - Thrombocytopenia [Recovered/Resolved]
  - Glomerular filtration rate decreased [Recovered/Resolved]
  - Urinary tract infection [Unknown]
  - Vasodilatation [Not Recovered/Not Resolved]
  - Urine protein/creatinine ratio increased [Recovered/Resolved]
  - Contusion [Not Recovered/Not Resolved]

NARRATIVE: CASE EVENT DATE: 20191231
